FAERS Safety Report 4330276-0 (Version None)
Quarter: 2004Q2

REPORT INFORMATION
  Report Type: 
  Country: None (occurrence: None)
  Receive Date: 20040402
  Receipt Date: 20040304
  Transmission Date: 20050107
  Serious: Yes (Other)
  Sender: FDA-Public Use
  Company Number: PHRM2004FR01058

PATIENT
  Age: 53 Year
  Sex: Male
  Weight: 67 kg

DRUGS (4)
  1. VISKEN [Suspect]
     Indication: TACHYCARDIA
     Dosage: 5 MG, QD
     Route: 048
     Dates: start: 20030103, end: 20040301
  2. OGAST [Suspect]
     Indication: GASTROOESOPHAGEAL REFLUX DISEASE
     Dosage: 15 MG, QD
     Route: 048
     Dates: start: 20030301, end: 20040301
  3. PLAVIX [Concomitant]
     Indication: ARTERIOPATHIC DISEASE
     Dosage: 1 DF, QD
     Route: 048
     Dates: start: 20021001
  4. TAHOR [Concomitant]
     Indication: HYPERCHOLESTEROLAEMIA
     Dosage: 20 G, QD
     Route: 048
     Dates: start: 20021001

REACTIONS (2)
  - PEMPHIGUS [None]
  - STOMATITIS [None]
